FAERS Safety Report 4700137-3 (Version None)
Quarter: 2005Q2

REPORT INFORMATION
  Report Type: 
  Country: None (occurrence: None)
  Receive Date: 20050627
  Receipt Date: 20050613
  Transmission Date: 20051028
  Serious: Yes (Other)
  Sender: FDA-Public Use
  Company Number: NO-KINGPHARMUSA00001-K200500843

PATIENT
  Age: 79 Year
  Sex: Female

DRUGS (14)
  1. LEVOXYL [Suspect]
     Indication: HYPOTHYROIDISM
     Dosage: 150 MCG, QD
  2. CIPROFLOXACIN [Suspect]
     Indication: WOUND INFECTION
     Dosage: 500 MG, BID
     Route: 048
     Dates: start: 20040715
  3. ZUCLOPENTHIXOL [Concomitant]
  4. ENALAPRIL [Concomitant]
  5. BUMETANIDE [Concomitant]
  6. PREDNISOLONE [Concomitant]
  7. FOLIC ACID [Concomitant]
  8. LACTULOSE [Concomitant]
  9. ACETYLCYSTEINE [Concomitant]
  10. HYDROXYCHLOROQUINE SULFATE [Concomitant]
  11. PARACETAMOL [Concomitant]
  12. IPRATROPIUM BROMIDE [Concomitant]
  13. ALBUTEROL [Concomitant]
  14. NYSTATIN [Concomitant]

REACTIONS (6)
  - BLOOD THYROID STIMULATING HORMONE INCREASED [None]
  - DRUG INTERACTION [None]
  - HYPOTHYROIDISM [None]
  - LEG AMPUTATION [None]
  - THYROXINE FREE DECREASED [None]
  - WOUND INFECTION [None]
